FAERS Safety Report 17505686 (Version 2)
Quarter: 2020Q2

REPORT INFORMATION
  Report Type: Report from Study
  Country: None (occurrence: CO)
  Receive Date: 20200306
  Receipt Date: 20200408
  Transmission Date: 20200713
  Serious: Yes (Hospitalization, Other)
  Sender: FDA-Public Use
  Company Number: CO-ABBVIE-20K-036-3307850-00

PATIENT
  Age: 47 Year
  Sex: Male
  Weight: 98 kg

DRUGS (1)
  1. ZEMPLAR [Suspect]
     Active Substance: PARICALCITOL
     Indication: HYPERPARATHYROIDISM SECONDARY
     Route: 048
     Dates: start: 20191115, end: 20191204

REACTIONS (7)
  - Arteriovenous fistula thrombosis [Recovering/Resolving]
  - Choking sensation [Recovering/Resolving]
  - Hepatitis C [Recovering/Resolving]
  - Amnesia [Recovering/Resolving]
  - Cerebral disorder [Unknown]
  - Procedural complication [Unknown]
  - Cardiac operation [Recovering/Resolving]

NARRATIVE: CASE EVENT DATE: 2020
